FAERS Safety Report 14525804 (Version 1)
Quarter: 2018Q1

REPORT INFORMATION
  Report Type: Spontaneous
  Country: US (occurrence: US)
  Receive Date: 20180211
  Receipt Date: 20180211
  Transmission Date: 20180509
  Serious: No
  Sender: FDA-Public Use
  Company Number: None

PATIENT

DRUGS (3)
  1. TEGRETOL [Suspect]
     Active Substance: CARBAMAZEPINE
     Indication: SEIZURE
  2. TEGRETOL [Suspect]
     Active Substance: CARBAMAZEPINE
     Indication: ALCOHOL ABUSE
  3. TEGRETOL [Suspect]
     Active Substance: CARBAMAZEPINE
     Indication: PROPHYLAXIS

REACTIONS (1)
  - Diplopia [None]

NARRATIVE: CASE EVENT DATE: 20180211
